FAERS Safety Report 23192431 (Version 1)
Quarter: 2023Q4

REPORT INFORMATION
  Report Type: Spontaneous
  Country: US (occurrence: None)
  Receive Date: 20231115
  Receipt Date: 20231115
  Transmission Date: 20240110
  Serious: Yes (Other)
  Sender: FDA-Public Use
  Company Number: None

PATIENT
  Sex: Female

DRUGS (42)
  1. ENBREL [Suspect]
     Active Substance: ETANERCEPT
     Indication: Juvenile idiopathic arthritis
     Dosage: FREQUENCY : WEEKLY;?
     Route: 058
     Dates: start: 20210123
  2. AJOVY [Concomitant]
     Active Substance: FREMANEZUMAB-VFRM
  3. AMITRIPTYLINE [Concomitant]
     Active Substance: AMITRIPTYLINE
  4. AMLODIPINE [Concomitant]
     Active Substance: AMLODIPINE BESYLATE
  5. ATORVASTATIN [Concomitant]
     Active Substance: ATORVASTATIN
  6. AZITHROMYCIN [Concomitant]
     Active Substance: AZITHROMYCIN
  7. CALCITONIN SPR [Concomitant]
  8. CELEBREX [Concomitant]
     Active Substance: CELECOXIB
  9. CYCLOBENZAPRINE [Concomitant]
     Active Substance: CYCLOBENZAPRINE
  10. CYTOMEL [Concomitant]
     Active Substance: LIOTHYRONINE SODIUM
  11. DEXILANT [Concomitant]
     Active Substance: DEXLANSOPRAZOLE
  12. ELECTRIPTAN [Concomitant]
  13. EPINEPHRINE INJ [Concomitant]
  14. FOLIC ACID [Concomitant]
     Active Substance: FOLIC ACID
  15. FUROSEMIDE [Concomitant]
     Active Substance: FUROSEMIDE
  16. GABAPENTIN [Concomitant]
     Active Substance: GABAPENTIN
  17. GAVILYTE-G SOL [Concomitant]
  18. HYDROCHLOROTHIAZIDE [Concomitant]
     Active Substance: HYDROCHLOROTHIAZIDE
  19. ACETAMINOPHEN\HYDROCODONE [Concomitant]
     Active Substance: ACETAMINOPHEN\HYDROCODONE
  20. A-HYDROCORT [Concomitant]
     Active Substance: HYDROCORTISONE SODIUM SUCCINATE
  21. LIDO/PRILOCN CRE [Concomitant]
  22. LIOTHYROCININE [Concomitant]
  23. LIPITOR [Concomitant]
     Active Substance: ATORVASTATIN CALCIUM
  24. MECLIZINE [Concomitant]
     Active Substance: MECLIZINE HYDROCHLORIDE
  25. METHOCARBAMOL [Concomitant]
     Active Substance: METHOCARBAMOL
  26. METHOTREXATE [Concomitant]
     Active Substance: METHOTREXATE
  27. METHYLPREDNISOLONE [Concomitant]
     Active Substance: METHYLPREDNISOLONE
  28. NURTEC ODT [Concomitant]
     Active Substance: RIMEGEPANT SULFATE
  29. ONDANSETRON [Concomitant]
     Active Substance: ONDANSETRON
  30. PILOCARPINE [Concomitant]
     Active Substance: PILOCARPINE
  31. PROZAC [Concomitant]
     Active Substance: FLUOXETINE HYDROCHLORIDE
  32. REGLAN [Concomitant]
     Active Substance: METOCLOPRAMIDE HYDROCHLORIDE
  33. SPIRONOLACTONE [Concomitant]
     Active Substance: SPIRONOLACTONE
  34. SYNTHROID [Concomitant]
     Active Substance: LEVOTHYROXINE SODIUM
  35. TIZANIDINE [Concomitant]
     Active Substance: TIZANIDINE
  36. TRAZODONE [Concomitant]
     Active Substance: TRAZODONE HYDROCHLORIDE
  37. TRULANCE [Concomitant]
     Active Substance: PLECANATIDE
  38. VOLTAREN [Concomitant]
     Active Substance: DICLOFENAC SODIUM
  39. XELJANZ [Concomitant]
     Active Substance: TOFACITINIB CITRATE
  40. XIIDRS DRO [Concomitant]
  41. ZOFRAN [Concomitant]
     Active Substance: ONDANSETRON HYDROCHLORIDE
  42. ZYRTEC ALLGY [Concomitant]

REACTIONS (1)
  - Limb operation [None]
